FAERS Safety Report 5000625-9 (Version None)
Quarter: 2006Q2

REPORT INFORMATION
  Report Type: 
  Country: None (occurrence: None)
  Receive Date: 20060501
  Receipt Date: 20050913
  Transmission Date: 20061013
  Serious: Yes (Other)
  Sender: FDA-Public Use
  Company Number: 2006047247

PATIENT
  Age: 62 Year
  Sex: Female

DRUGS (2)
  1. BEXTRA [Suspect]
     Indication: GOUT
     Dosage: 10 MG (10 MG)
     Dates: start: 20040325
  2. WELLBUTRIN [Concomitant]

REACTIONS (3)
  - HYPERTENSION [None]
  - SMOKER [None]
  - STEVENS-JOHNSON SYNDROME [None]
